FAERS Safety Report 21266934 (Version 2)
Quarter: 2023Q1

REPORT INFORMATION
  Report Type: Spontaneous
  Country: US (occurrence: US)
  Receive Date: 20220829
  Receipt Date: 20230209
  Transmission Date: 20230417
  Serious: Yes (Life-Threatening, Hospitalization, Other)
  Sender: FDA-Public Use
  Company Number: US-PFIZER INC-202201065034

PATIENT
  Age: 39 Year
  Sex: Female

DRUGS (14)
  1. HEPARIN SODIUM [Suspect]
     Active Substance: HEPARIN SODIUM
     Indication: Pulmonary embolism
     Dosage: UNK
  2. VANCOMYCIN HYDROCHLORIDE [Suspect]
     Active Substance: VANCOMYCIN HYDROCHLORIDE
     Indication: Septic shock
     Dosage: UNK
  3. EPOPROSTENOL [Suspect]
     Active Substance: EPOPROSTENOL
     Indication: Sedation
     Dosage: UNK
  4. VASOPRESSIN [Concomitant]
     Active Substance: VASOPRESSIN
     Indication: Mean arterial pressure
     Dosage: 0.04 U/MIN
  5. NOREPINEPHRINE [Concomitant]
     Active Substance: NOREPINEPHRINE
     Indication: Mean arterial pressure
     Dosage: 22 MCG/MIN
  6. DEXTROSE\SODIUM CHLORIDE [Concomitant]
     Active Substance: DEXTROSE\SODIUM CHLORIDE
     Indication: Hypertriglyceridaemia
     Dosage: UNK
     Route: 041
  7. CISATRACURIUM [Concomitant]
     Active Substance: CISATRACURIUM
     Indication: Sedation
     Dosage: INHALED
  8. EPINEPHRINE [Concomitant]
     Active Substance: EPINEPHRINE
     Indication: Hypoxia
     Dosage: (5 MCG/MIN)
  9. EPINEPHRINE [Concomitant]
     Active Substance: EPINEPHRINE
     Indication: Haemodynamic instability
     Dosage: (2 MCG/MIN)
  10. EPINEPHRINE [Concomitant]
     Active Substance: EPINEPHRINE
     Indication: Acidosis
  11. ALTEPLASE [Concomitant]
     Active Substance: ALTEPLASE
     Indication: Pulmonary embolism
     Dosage: 50 MG (10 MG BOLUS, 40 MG INFUSION GIVEN OVER 2 HOURS)
  12. ALTEPLASE [Concomitant]
     Active Substance: ALTEPLASE
     Indication: Shock
  13. ALTEPLASE [Concomitant]
     Active Substance: ALTEPLASE
     Indication: Hypoxia
  14. GEMFIBROZIL [Concomitant]
     Active Substance: GEMFIBROZIL
     Dosage: UNK

REACTIONS (1)
  - Thrombocytopenia [Unknown]
